FAERS Safety Report 10390474 (Version 1)
Quarter: 2014Q3

REPORT INFORMATION
  Report Type: Spontaneous
  Country: US (occurrence: None)
  Receive Date: 20140814
  Receipt Date: 20140814
  Transmission Date: 20150326
  Serious: Yes (Hospitalization, Other)
  Sender: FDA-Public Use
  Company Number: AUR-APL-2014-07370

PATIENT
  Age: 42 Year
  Sex: Male

DRUGS (4)
  1. FENOFIBRATE (FENOFIBRATE) [Concomitant]
  2. OMEGA-3 FATTY ACIDS (OMEGA-3 FATTY ACIDS) [Concomitant]
  3. QUETIAPINE [Suspect]
     Active Substance: QUETIAPINE
     Indication: SCHIZOAFFECTIVE DISORDER
     Dates: start: 201302
  4. LANTUS [Concomitant]
     Active Substance: INSULIN GLARGINE

REACTIONS (5)
  - Pancreatitis acute [None]
  - Blood insulin increased [None]
  - Tachycardia [None]
  - Condition aggravated [None]
  - Hypertriglyceridaemia [None]
